FAERS Safety Report 15211764 (Version 1)
Quarter: 2018Q3

REPORT INFORMATION
  Report Type: Spontaneous
  Country: US (occurrence: US)
  Receive Date: 20180702
  Receipt Date: 20180702
  Transmission Date: 20181010
  Serious: Yes (Death)
  Sender: FDA-Public Use
  Company Number: None

PATIENT
  Sex: Male

DRUGS (4)
  1. XX [Concomitant]
  2. ZYTIGA [Suspect]
     Active Substance: ABIRATERONE ACETATE
     Dosage: 2 TABS (1000MG) DAILY ORAL??DEATH
     Route: 048
     Dates: start: 20180531
  3. PREDNISONE. [Concomitant]
     Active Substance: PREDNISONE
  4. XX [Concomitant]

REACTIONS (1)
  - Death [None]
